FAERS Safety Report 6636123-6 (Version None)
Quarter: 2010Q1

REPORT INFORMATION
  Report Type: 
  Country: None (occurrence: None)
  Receive Date: 20100316
  Receipt Date: 20100310
  Transmission Date: 20100710
  Serious: Yes (Hospitalization)
  Sender: FDA-Public Use
  Company Number: IT-BAYER-201018864GPV

PATIENT
  Age: 76 Year
  Sex: Male

DRUGS (6)
  1. NEXAVAR [Suspect]
     Indication: HEPATIC NEOPLASM MALIGNANT
     Route: 048
     Dates: start: 20100215, end: 20100215
  2. LASIX [Concomitant]
     Route: 048
     Dates: start: 20040101, end: 20100225
  3. ESOPRAL [Concomitant]
     Route: 048
     Dates: start: 20040101, end: 20100225
  4. KANRENOL [Concomitant]
     Route: 048
     Dates: start: 20040101, end: 20100225
  5. HUMATIN [Concomitant]
     Route: 048
     Dates: start: 20040101, end: 20100225
  6. LAEVOLAC [Concomitant]
     Route: 048
     Dates: start: 20040101, end: 20100225

REACTIONS (2)
  - ABDOMINAL PAIN UPPER [None]
  - SYNCOPE [None]
